FAERS Safety Report 4883499-6 (Version None)
Quarter: 2006Q1

REPORT INFORMATION
  Report Type: 
  Country: None (occurrence: None)
  Receive Date: 20060118
  Receipt Date: 20060106
  Transmission Date: 20060701
  Serious: Yes (Death, Other)
  Sender: FDA-Public Use
  Company Number: ES-MERCK-0601ESP00013B1

PATIENT
  Weight: 1 kg

DRUGS (18)
  1. CRIXIVAN [Suspect]
     Indication: HIV INFECTION
  2. ZIDOVUDINE [Suspect]
     Indication: HIV INFECTION
  3. ZIDOVUDINE [Suspect]
  4. ZIDOVUDINE [Suspect]
  5. ZIDOVUDINE [Suspect]
  6. ZALCITABINE [Suspect]
     Indication: HIV INFECTION
  7. SAQUINAVIR [Suspect]
     Indication: HIV INFECTION
  8. STAVUDINE [Suspect]
     Indication: HIV INFECTION
  9. STAVUDINE [Suspect]
  10. LAMIVUDINE [Suspect]
     Indication: HIV INFECTION
  11. LAMIVUDINE [Suspect]
  12. LAMIVUDINE [Suspect]
  13. LAMIVUDINE [Suspect]
  14. LAMIVUDINE [Suspect]
  15. ABACAVIR SULFATE [Suspect]
     Indication: HIV INFECTION
  16. ABACAVIR SULFATE [Suspect]
  17. ABACAVIR SULFATE [Suspect]
  18. NEVIRAPINE [Suspect]
     Indication: HIV INFECTION

REACTIONS (3)
  - DRUG EXPOSURE DURING PREGNANCY [None]
  - INTRA-UTERINE DEATH [None]
  - SMALL FOR DATES BABY [None]
